FAERS Safety Report 17120378 (Version 1)
Quarter: 2019Q4

REPORT INFORMATION
  Report Type: Spontaneous
  Country: US (occurrence: US)
  Receive Date: 20191206
  Receipt Date: 20191206
  Transmission Date: 20200122
  Serious: Yes (Hospitalization, Other)
  Sender: FDA-Public Use
  Company Number: US-ALKEM LABORATORIES LIMITED-US-ALKEM-2019-00613

PATIENT
  Age: 50 Year
  Sex: Female

DRUGS (2)
  1. METFORMIN HYDROCHLORIDE. [Suspect]
     Active Substance: METFORMIN HYDROCHLORIDE
     Indication: WEIGHT DECREASED
     Dosage: 850 MG, UNK, SEVERAL TIMES DAILY
     Route: 048
  2. METFORMIN HYDROCHLORIDE. [Suspect]
     Active Substance: METFORMIN HYDROCHLORIDE
     Indication: AFFECTIVE DISORDER

REACTIONS (5)
  - Lactic acidosis [Unknown]
  - Acute kidney injury [Unknown]
  - Drug abuse [Unknown]
  - Near death experience [Unknown]
  - Multi-organ disorder [Unknown]
